FAERS Safety Report 19368324 (Version 1)
Quarter: 2021Q2

REPORT INFORMATION
  Report Type: Spontaneous
  Country: US (occurrence: US)
  Receive Date: 20210602
  Receipt Date: 20210602
  Transmission Date: 20210717
  Serious: No
  Sender: FDA-Public Use
  Company Number: US-ROCHE-2642348

PATIENT
  Age: 54 Year
  Sex: Female
  Weight: 90.8 kg

DRUGS (2)
  1. OCREVUS [Suspect]
     Active Substance: OCRELIZUMAB
     Indication: MULTIPLE SCLEROSIS
     Dosage: ON 10/JAN/2020, SHE RECEIVED ANOTHER DOSE OF IV OCRELIZUMAB (LOT NUMBER: UNKNOWN; DOSE NOT REPORTED)
     Route: 042
     Dates: start: 202001
  2. OCREVUS [Suspect]
     Active Substance: OCRELIZUMAB
     Indication: RELAPSING MULTIPLE SCLEROSIS

REACTIONS (1)
  - Tooth fracture [Not Recovered/Not Resolved]

NARRATIVE: CASE EVENT DATE: 20200708
